FAERS Safety Report 8476563-6 (Version None)
Quarter: 2012Q2

REPORT INFORMATION
  Report Type: 
  Country: None (occurrence: None)
  Receive Date: 20120622
  Receipt Date: 20120606
  Transmission Date: 20120825
  Serious: Yes (Hospitalization)
  Sender: FDA-Public Use
  Company Number: DSA_57812_2012

PATIENT
  Age: 64 Year
  Sex: Female

DRUGS (2)
  1. METOPROLOL TARTRATE [Concomitant]
  2. ENALAPRIL MALEATE [Suspect]
     Indication: HYPERTENSION
     Dosage: 10 MG, QD, ORAL
     Route: 048
     Dates: end: 20120214

REACTIONS (4)
  - SOMNOLENCE [None]
  - URINARY INCONTINENCE [None]
  - VOMITING [None]
  - INAPPROPRIATE ANTIDIURETIC HORMONE SECRETION [None]
